FAERS Safety Report 9851757 (Version 1)
Quarter: 2014Q1

REPORT INFORMATION
  Report Type: Spontaneous
  Country: BR (occurrence: BR)
  Receive Date: 20140129
  Receipt Date: 20140129
  Transmission Date: 20141002
  Serious: Yes (Other)
  Sender: FDA-Public Use
  Company Number: BR-ACCORD-021553

PATIENT
  Age: 51 Year
  Sex: Male
  Weight: 97.5 kg

DRUGS (3)
  1. FOLINIC ACID [Concomitant]
     Indication: COLON CANCER
     Dosage: C3:D1
     Route: 042
     Dates: start: 20140109, end: 20140109
  2. OXALIPLATIN [Concomitant]
     Indication: COLON CANCER
     Dosage: C3:D1
     Route: 042
     Dates: start: 20140109, end: 20140109
  3. FLUOROURACIL [Suspect]
     Indication: COLON CANCER
     Dosage: C3:D1
     Route: 042
     Dates: start: 20140109, end: 20140109

REACTIONS (4)
  - Dyspnoea [Recovered/Resolved]
  - Oxygen saturation decreased [Recovered/Resolved]
  - Cough [Recovered/Resolved]
  - Flushing [Recovered/Resolved]
